FAERS Safety Report 5402241-3 (Version None)
Quarter: 2007Q3

REPORT INFORMATION
  Report Type: 
  Country: None (occurrence: None)
  Receive Date: 20070727
  Receipt Date: 20061114
  Transmission Date: 20080115
  Serious: Yes (Hospitalization)
  Sender: FDA-Public Use
  Company Number: THYM-11167

PATIENT
  Age: 50 Year
  Sex: Male
  Weight: 96.4 kg

DRUGS (18)
  1. THYMOGLOBULIN [Suspect]
     Indication: RENAL TRANSPLANT
     Dosage: 135 MG QD; IV
     Route: 042
     Dates: start: 20060921, end: 20060921
  2. THYMOGLOBULIN [Suspect]
     Indication: RENAL TRANSPLANT
     Dosage: 71 G QD; IV
     Route: 042
     Dates: start: 20060922, end: 20060922
  3. THYMOGLOBULIN [Suspect]
     Indication: RENAL TRANSPLANT
     Dosage: 70 MG QD; IV
     Route: 042
     Dates: start: 20060927, end: 20060927
  4. PROGRAF [Concomitant]
  5. CELLCEPT [Concomitant]
  6. BACTRIM [Concomitant]
  7. DIFLUCAN [Concomitant]
  8. VALCYTE [Concomitant]
  9. PREVACID [Concomitant]
  10. LOPRESSOR [Concomitant]
  11. MYLICON [Concomitant]
  12. PROCRIT [Concomitant]
  13. SENOKOT [Concomitant]
  14. ASPIRIN [Concomitant]
  15. PLAVIX [Concomitant]
  16. ACTIGALL [Concomitant]
  17. MULTI-VITAMIN [Concomitant]
  18. VICODIN [Concomitant]

REACTIONS (5)
  - ANASTOMOTIC STENOSIS [None]
  - BLOOD CREATININE INCREASED [None]
  - BLOOD UREA INCREASED [None]
  - FLANK PAIN [None]
  - HYPERKALAEMIA [None]
